APPROVED DRUG PRODUCT: LIDOSITE TOPICAL SYSTEM KIT
Active Ingredient: EPINEPHRINE; LIDOCAINE HYDROCHLORIDE
Strength: 1.05MG/PATCH;100MG/PATCH
Dosage Form/Route: PATCH;IONTOPHORESIS, TOPICAL
Application: N021504 | Product #001
Applicant: VYTERIS INC
Approved: May 6, 2004 | RLD: No | RS: No | Type: DISCN